FAERS Safety Report 10195018 (Version 2)
Quarter: 2014Q3

REPORT INFORMATION
  Report Type: Report from Study
  Country: BR (occurrence: BR)
  Receive Date: 20140526
  Receipt Date: 20140718
  Transmission Date: 20150326
  Serious: Yes (Other)
  Sender: FDA-Public Use
  Company Number: PHHY2014BR059256

PATIENT
  Sex: Male
  Weight: 32 kg

DRUGS (3)
  1. POLARAMINE [Concomitant]
     Active Substance: DEXCHLORPHENIRAMINE MALEATE
     Indication: RHINITIS
     Dosage: UNK UKN, UNK
  2. RITALIN LA [Suspect]
     Active Substance: METHYLPHENIDATE HYDROCHLORIDE
     Indication: ATTENTION DEFICIT/HYPERACTIVITY DISORDER
     Dosage: 1 DF (1 CAPSULE OF 10MG), DAILY
     Route: 048
     Dates: start: 201306, end: 201306
  3. RITALIN LA [Suspect]
     Active Substance: METHYLPHENIDATE HYDROCHLORIDE
     Dosage: 1 DF (1 CAPSULE OF 20MG), DAILY
     Route: 048
     Dates: start: 201402

REACTIONS (5)
  - Disturbance in attention [Not Recovered/Not Resolved]
  - Dyslexia [Not Recovered/Not Resolved]
  - Learning disorder [Unknown]
  - Depression [Not Recovered/Not Resolved]
  - Attention deficit/hyperactivity disorder [Recovering/Resolving]

NARRATIVE: CASE EVENT DATE: 2013
